FAERS Safety Report 17679087 (Version 2)
Quarter: 2020Q2

REPORT INFORMATION
  Report Type: Spontaneous
  Country: US (occurrence: US)
  Receive Date: 20200417
  Receipt Date: 20200424
  Transmission Date: 20200714
  Serious: Yes (Death, Other)
  Sender: FDA-Public Use
  Company Number: US-ASTRAZENECA-2018SF65394

PATIENT
  Age: 30419 Day
  Sex: Female

DRUGS (30)
  1. ALDACTANE [Concomitant]
  2. ARANESP [Concomitant]
     Active Substance: DARBEPOETIN ALFA
  3. SENSIPAR [Concomitant]
     Active Substance: CINACALCET HYDROCHLORIDE
  4. COUMADIN [Concomitant]
     Active Substance: WARFARIN SODIUM
  5. ASPIRIN. [Concomitant]
     Active Substance: ASPIRIN
  6. ZETIA [Concomitant]
     Active Substance: EZETIMIBE
  7. LISINOPRIL. [Concomitant]
     Active Substance: LISINOPRIL
  8. CIPRO [Concomitant]
     Active Substance: CIPROFLOXACIN HYDROCHLORIDE
  9. LANTUS [Concomitant]
     Active Substance: INSULIN GLARGINE
  10. ALLOPURINOL. [Concomitant]
     Active Substance: ALLOPURINOL
  11. TYLENOL [Concomitant]
     Active Substance: ACETAMINOPHEN
  12. METOPROLOL SUCCINATE. [Concomitant]
     Active Substance: METOPROLOL SUCCINATE
     Dates: start: 20131126
  13. AMLODIPINE BESYLATE. [Concomitant]
     Active Substance: AMLODIPINE BESYLATE
     Dates: start: 20140501
  14. FISH OIL [Concomitant]
     Active Substance: FISH OIL
     Dates: start: 20110929
  15. FLAXSEED [Concomitant]
     Active Substance: FLAX SEED
  16. PREVACID [Suspect]
     Active Substance: LANSOPRAZOLE
     Route: 065
     Dates: start: 2011, end: 2015
  17. PREVACID 24 HR [Suspect]
     Active Substance: LANSOPRAZOLE
     Route: 065
     Dates: start: 2011, end: 2015
  18. BUMEX [Concomitant]
     Active Substance: BUMETANIDE
  19. VESICARE [Concomitant]
     Active Substance: SOLIFENACIN SUCCINATE
     Dates: start: 20140324
  20. PRILOSEC [Suspect]
     Active Substance: OMEPRAZOLE MAGNESIUM
     Route: 048
     Dates: start: 2011, end: 2015
  21. PREVACID [Suspect]
     Active Substance: LANSOPRAZOLE
     Route: 048
  22. CRESTOR [Concomitant]
     Active Substance: ROSUVASTATIN CALCIUM
  23. NEURONTIN [Concomitant]
     Active Substance: GABAPENTIN
  24. FLORASTOR [Concomitant]
     Active Substance: SACCHAROMYCES CEREVISIAE
     Dates: start: 20130711
  25. PRILOSEC [Suspect]
     Active Substance: OMEPRAZOLE MAGNESIUM
     Route: 048
  26. PROTONIX [Suspect]
     Active Substance: PANTOPRAZOLE SODIUM
     Route: 065
     Dates: start: 2011, end: 2015
  27. COREG [Concomitant]
     Active Substance: CARVEDILOL
  28. MULTIVITAMIN [Concomitant]
     Active Substance: VITAMINS
     Dates: start: 20080208
  29. METOLAZONE. [Concomitant]
     Active Substance: METOLAZONE
  30. MAGNESIUM OXIDE. [Concomitant]
     Active Substance: MAGNESIUM OXIDE
     Dates: start: 20131004

REACTIONS (9)
  - Cardio-respiratory arrest [Fatal]
  - Nephrogenic anaemia [Unknown]
  - Chronic kidney disease [Unknown]
  - Renal failure [Unknown]
  - Metabolic acidosis [Fatal]
  - Ventricular fibrillation [Fatal]
  - End stage renal disease [Fatal]
  - Acute kidney injury [Unknown]
  - Rebound acid hypersecretion [Unknown]

NARRATIVE: CASE EVENT DATE: 20141211
